FAERS Safety Report 6528000-6 (Version None)
Quarter: 2010Q1

REPORT INFORMATION
  Report Type: 
  Country: None (occurrence: None)
  Receive Date: 20100105
  Receipt Date: 20100105
  Transmission Date: 20100710
  Serious: No
  Sender: FDA-Public Use
  Company Number: None

PATIENT
  Age: 48 Year
  Sex: Female
  Weight: 106.1417 kg

DRUGS (2)
  1. SEROQUEL [Suspect]
     Indication: BIPOLAR DISORDER
     Dates: start: 20050101, end: 20070101
  2. SEROQUEL [Suspect]
     Indication: DEPRESSION
     Dates: start: 20050101, end: 20070101

REACTIONS (2)
  - EXCESSIVE EYE BLINKING [None]
  - OROMANDIBULAR DYSTONIA [None]
